FAERS Safety Report 18123306 (Version 1)
Quarter: 2020Q3

REPORT INFORMATION
  Report Type: Spontaneous
  Country: FR (occurrence: FR)
  Receive Date: 20200807
  Receipt Date: 20200807
  Transmission Date: 20201103
  Serious: Yes (Hospitalization)
  Sender: FDA-Public Use
  Company Number: FR-ADMA BIOLOGICS INC.-FR-2020ADM000005

PATIENT
  Age: 66 Year
  Sex: Male

DRUGS (3)
  1. ELTROMBOPAG [Concomitant]
     Active Substance: ELTROMBOPAG
     Indication: PRODUCT USED FOR UNKNOWN INDICATION
     Dosage: 50 MG, QD
  2. IMMUNE GLOBULIN INTRAVENOUS, HUMAN ? SLRA [Suspect]
     Active Substance: HUMAN IMMUNOGLOBULIN G
     Indication: ANTIBODY TEST NEGATIVE
     Dosage: 1 G/KG
  3. ELTROMBOPAG [Concomitant]
     Active Substance: ELTROMBOPAG
     Dosage: 25 MG, QD

REACTIONS (1)
  - Cardiac failure acute [Recovering/Resolving]
